FAERS Safety Report 6718683-X (Version None)
Quarter: 2010Q2

REPORT INFORMATION
  Report Type: 
  Country: None (occurrence: None)
  Receive Date: 20100506
  Receipt Date: 20100423
  Transmission Date: 20101027
  Serious: Yes (Other)
  Sender: FDA-Public Use
  Company Number: DSA_43045_2010

PATIENT
  Sex: Female
  Weight: 63.5036 kg

DRUGS (5)
  1. CARDIZEM [Suspect]
     Indication: HYPERTENSION
     Dosage: (DF ORAL)
     Route: 048
     Dates: start: 20090401
  2. CARDURA [Suspect]
     Indication: HYPERTENSION
     Dosage: (1/2 OF 2 MG TABLET), (2 MG QD)
     Dates: start: 20090401, end: 20090901
  3. CARDURA [Suspect]
     Indication: HYPERTENSION
     Dosage: (1/2 OF 2 MG TABLET), (2 MG QD)
     Dates: start: 20090901
  4. AVAPRO [Suspect]
     Indication: DRUG USE FOR UNKNOWN INDICATION
     Dosage: (DF)
     Dates: start: 20050101
  5. TRILIPIX [Concomitant]

REACTIONS (4)
  - ANGIOEDEMA [None]
  - JOINT INJURY [None]
  - JOINT SWELLING [None]
  - OEDEMA PERIPHERAL [None]
